FAERS Safety Report 21727784 (Version 1)
Quarter: 2022Q4

REPORT INFORMATION
  Report Type: Spontaneous
  Country: FR (occurrence: FR)
  Receive Date: 20221214
  Receipt Date: 20221214
  Transmission Date: 20230112
  Serious: Yes (Hospitalization)
  Sender: FDA-Public Use
  Company Number: None

PATIENT
  Age: 28 Year
  Sex: Female
  Weight: 80 kg

DRUGS (3)
  1. CHORIOGONADOTROPIN ALFA [Suspect]
     Active Substance: CHORIOGONADOTROPIN ALFA
     Indication: Controlled ovarian stimulation
     Dosage: POWDER AND SOLVENT FOR SOLUTION FOR INJECTION
     Route: 058
     Dates: start: 20220313, end: 20220313
  2. CETROTIDE [Suspect]
     Active Substance: CETRORELIX ACETATE
     Indication: Controlled ovarian stimulation
     Route: 058
     Dates: start: 20220307, end: 20220312
  3. FOLLITROPIN ALFA [Suspect]
     Active Substance: FOLLITROPIN ALFA
     Indication: Controlled ovarian stimulation
     Dosage: 75 UI/0.125 ML SOLUTION FOR INJECTION IN PRE-FILLED PEN
     Route: 058
     Dates: start: 20220302, end: 20220312

REACTIONS (2)
  - Ovarian hyperstimulation syndrome [Recovered/Resolved]
  - Venous thrombosis [Recovered/Resolved]

NARRATIVE: CASE EVENT DATE: 20220328
